FAERS Safety Report 10185395 (Version 1)
Quarter: 2014Q2

REPORT INFORMATION
  Report Type: Spontaneous
  Country: US (occurrence: None)
  Receive Date: 20140520
  Receipt Date: 20140520
  Transmission Date: 20141212
  Serious: Yes (Death)
  Sender: FDA-Public Use
  Company Number: None

PATIENT
  Age: 61 Year
  Sex: Male
  Weight: 108.86 kg

DRUGS (20)
  1. CABOZANTINIB [Suspect]
     Indication: THYROID CANCER
     Route: 048
     Dates: start: 20140424, end: 20140517
  2. ALLOPURINOL [Concomitant]
  3. AMLODIPINE BESYLATE [Concomitant]
  4. ASPIRIN [Concomitant]
  5. CALCITRIOL [Concomitant]
  6. CALCIUM CARBONATE-VITAMIN D [Concomitant]
  7. DOCUSATE SODIUM [Concomitant]
  8. FIBER [Concomitant]
  9. FINASTERIDE [Concomitant]
  10. LISINOPRIL [Concomitant]
  11. LOVASTATIN [Concomitant]
  12. MAGNESIUM [Concomitant]
  13. MORPHINE [Concomitant]
  14. OMEPRAZOLE [Concomitant]
  15. POLYETHYLENE GLYCOL [Concomitant]
  16. SENNOSIDES [Concomitant]
  17. SILDENAFIL CITRATE [Concomitant]
  18. SYNTHROID [Concomitant]
  19. TAMSULOSIN [Concomitant]
  20. TOPIRAMATE [Concomitant]

REACTIONS (4)
  - Cardiac arrest [None]
  - Sudden death [None]
  - Thrombophlebitis superficial [None]
  - Deep vein thrombosis [None]
